FAERS Safety Report 16050760 (Version 1)
Quarter: 2019Q1

REPORT INFORMATION
  Report Type: Spontaneous
  Country: US (occurrence: US)
  Receive Date: 20190308
  Receipt Date: 20190308
  Transmission Date: 20190418
  Serious: No
  Sender: FDA-Public Use
  Company Number: US-TEVA-2019-US-1012833

PATIENT
  Sex: Female
  Weight: 81.65 kg

DRUGS (2)
  1. PRAMIPEXOLE. [Suspect]
     Active Substance: PRAMIPEXOLE
     Dosage: .75 MILLIGRAM DAILY; STARTED THIS 4-5 MONTHS AGO
     Route: 048
  2. PRAMIPEXOLE. [Suspect]
     Active Substance: PRAMIPEXOLE
     Indication: PARKINSON^S DISEASE
     Dosage: .375 MILLIGRAM DAILY; STARTED THIS 4-5 MONTHS AGO
     Route: 048
     Dates: start: 2017

REACTIONS (1)
  - Hypersensitivity [Unknown]
